FAERS Safety Report 7328876-9 (Version None)
Quarter: 2011Q1

REPORT INFORMATION
  Report Type: 
  Country: None (occurrence: None)
  Receive Date: 20110303
  Receipt Date: 20110225
  Transmission Date: 20110831
  Serious: Yes (Other)
  Sender: FDA-Public Use
  Company Number: HR-ROCHE-762429

PATIENT
  Age: 56 Year
  Sex: Male

DRUGS (2)
  1. AVELOX [Concomitant]
     Indication: PNEUMONIA
     Route: 048
     Dates: start: 20110129, end: 20110131
  2. TAMIFLU [Suspect]
     Indication: INFLUENZA
     Dosage: FREQUENCY: DAILY
     Route: 048
     Dates: start: 20110127, end: 20110130

REACTIONS (3)
  - ANXIETY [None]
  - DEPRESSED MOOD [None]
  - PANIC ATTACK [None]
